FAERS Safety Report 10264532 (Version 1)
Quarter: 2014Q2

REPORT INFORMATION
  Report Type: Spontaneous
  Country: US (occurrence: US)
  Receive Date: 20140627
  Receipt Date: 20140627
  Transmission Date: 20141212
  Serious: No
  Sender: FDA-Public Use
  Company Number: US-BRACCO-010496

PATIENT
  Age: 67 Year
  Sex: Male

DRUGS (1)
  1. MULTIHANCE [Suspect]
     Indication: DIAGNOSTIC PROCEDURE
     Route: 042
     Dates: start: 20131223, end: 20131223

REACTIONS (2)
  - Vision blurred [Recovered/Resolved]
  - Lid sulcus deepened [Recovered/Resolved]
